FAERS Safety Report 21119606 (Version 1)
Quarter: 2022Q3

REPORT INFORMATION
  Report Type: Spontaneous
  Country: US (occurrence: None)
  Receive Date: 20220721
  Receipt Date: 20220721
  Transmission Date: 20221026
  Serious: Yes (Hospitalization, Other)
  Sender: FDA-Public Use
  Company Number: None

PATIENT
  Age: 61 Year
  Sex: Female
  Weight: 85.5 kg

DRUGS (4)
  1. MAGNESIUM CITRATE [Suspect]
     Active Substance: MAGNESIUM CITRATE
     Indication: Bowel preparation
     Dosage: OTHER QUANTITY : 10 OUNCE(S);?OTHER FREQUENCY : TAKE DAY PRIOR;?
     Dates: start: 20220704
  2. Atvorstatin [Concomitant]
  3. METOPROLOL [Concomitant]
     Active Substance: METOPROLOL
  4. flecanaide [Concomitant]

REACTIONS (7)
  - Procedural headache [None]
  - Migraine [None]
  - Aphonia [None]
  - Bronchitis [None]
  - Chest pain [None]
  - Pneumonia [None]
  - Post procedural infection [None]

NARRATIVE: CASE EVENT DATE: 20220705
